FAERS Safety Report 23110755 (Version 1)
Quarter: 2023Q4

REPORT INFORMATION
  Report Type: Report from Study
  Country: FR (occurrence: FR)
  Receive Date: 20231026
  Receipt Date: 20231026
  Transmission Date: 20240110
  Serious: Yes (Life-Threatening, Hospitalization, Other)
  Sender: FDA-Public Use
  Company Number: FR-JAZZ-2019-FR-010286

PATIENT

DRUGS (22)
  1. DEFITELIO [Suspect]
     Active Substance: DEFIBROTIDE SODIUM
     Indication: Venoocclusive liver disease
     Dosage: 25 MG/KG, QD
     Dates: start: 20181012, end: 20181031
  2. DEFITELIO [Suspect]
     Active Substance: DEFIBROTIDE SODIUM
     Dosage: INTENTIONAL OVER DOSE
     Dates: end: 20181031
  3. CYCLOPHOSPHAMIDE [Suspect]
     Active Substance: CYCLOPHOSPHAMIDE
     Indication: Prophylaxis against graft versus host disease
     Dosage: 3000 MILLIGRAM
     Route: 042
     Dates: start: 20180928, end: 20180928
  4. ALGINIC ACID\ALUMINUM HYDROXIDE [Suspect]
     Active Substance: ALGINIC ACID\ALUMINUM HYDROXIDE
  5. SODIUM CHLORIDE [Concomitant]
     Active Substance: SODIUM CHLORIDE
  6. VITAMIN K [Concomitant]
     Active Substance: PHYTONADIONE
  7. SOLU-MEDROL [Concomitant]
     Active Substance: METHYLPREDNISOLONE SODIUM SUCCINATE
  8. VALACYCLOVIR HYDROCHLORIDE [Concomitant]
     Active Substance: VALACYCLOVIR HYDROCHLORIDE
  9. CELLCEPT [Concomitant]
     Active Substance: MYCOPHENOLATE MOFETIL
  10. CYCLOSPORINE [Concomitant]
     Active Substance: CYCLOSPORINE
  11. URSODIOL [Concomitant]
     Active Substance: URSODIOL
  12. BACTRIM [Concomitant]
     Active Substance: SULFAMETHOXAZOLE\TRIMETHOPRIM
  13. PRIMPERAN [Concomitant]
     Active Substance: METOCLOPRAMIDE HYDROCHLORIDE
  14. PHLOROGLUCINOL [Concomitant]
     Active Substance: PHLOROGLUCINOL
  15. SUPROFEN [Concomitant]
     Active Substance: SUPROFEN
  16. PANTOPRAZOLE [Concomitant]
     Active Substance: PANTOPRAZOLE
  17. FILGRASTIM [Concomitant]
     Active Substance: FILGRASTIM
  18. FUROSEMIDE [Concomitant]
     Active Substance: FUROSEMIDE
  19. YDRALBUM [Concomitant]
     Active Substance: ALBUMIN HUMAN
  20. LEVOTHYROXINE [Concomitant]
     Active Substance: LEVOTHYROXINE
  21. DESOGESTREL [Concomitant]
     Active Substance: DESOGESTREL
  22. XANAX [Concomitant]
     Active Substance: ALPRAZOLAM

REACTIONS (6)
  - Respiratory failure [Recovered/Resolved]
  - Cardiac failure [Recovered/Resolved]
  - Acute graft versus host disease in skin [Unknown]
  - Lung disorder [Recovered/Resolved]
  - Intentional overdose [Unknown]
  - Off label use [Unknown]

NARRATIVE: CASE EVENT DATE: 20180101
